FAERS Safety Report 8543214-1 (Version None)
Quarter: 2012Q3

REPORT INFORMATION
  Report Type: 
  Country: None (occurrence: None)
  Receive Date: 20120727
  Receipt Date: 20120718
  Transmission Date: 20120928
  Serious: Yes (Other)
  Sender: FDA-Public Use
  Company Number: RS-JNJFOC-20100510044

PATIENT
  Sex: Male

DRUGS (6)
  1. TEGRETOL [Concomitant]
     Indication: EPILEPSY
     Route: 048
     Dates: end: 20100101
  2. CONCERTA [Suspect]
     Indication: ATTENTION DEFICIT/HYPERACTIVITY DISORDER
     Dosage: ONCE IN MORNING
     Route: 048
     Dates: start: 20100615
  3. TOPAMAX [Concomitant]
     Indication: EPILEPSY
     Route: 048
  4. CLONAZEPAM [Concomitant]
     Indication: EPILEPSY
     Route: 048
  5. CONCERTA [Suspect]
     Dosage: ONCE IN MORNING
     Route: 048
     Dates: start: 20100401, end: 20100404
  6. VALPROIC ACID [Concomitant]
     Indication: EPILEPSY
     Route: 048

REACTIONS (5)
  - ABASIA [None]
  - DECREASED APPETITE [None]
  - SLOW RESPONSE TO STIMULI [None]
  - MALAISE [None]
  - SOCIAL AVOIDANT BEHAVIOUR [None]
